FAERS Safety Report 25393472 (Version 1)
Quarter: 2025Q2

REPORT INFORMATION
  Report Type: Spontaneous
  Country: US (occurrence: US)
  Receive Date: 20250604
  Receipt Date: 20250604
  Transmission Date: 20250716
  Serious: No
  Sender: Haleon PLC
  Company Number: US-HALEON-2245339

PATIENT
  Age: 68 Year
  Sex: Male

DRUGS (2)
  1. ABREVA [Suspect]
     Active Substance: DOCOSANOL
     Indication: Oral herpes
  2. ABREVA [Suspect]
     Active Substance: DOCOSANOL

REACTIONS (1)
  - Drug ineffective [Not Recovered/Not Resolved]
